FAERS Safety Report 9387081 (Version 1)
Quarter: 2013Q3

REPORT INFORMATION
  Report Type: Spontaneous
  Country: FR (occurrence: FR)
  Receive Date: 20130708
  Receipt Date: 20130708
  Transmission Date: 20140515
  Serious: Yes (Other)
  Sender: FDA-Public Use
  Company Number: PHHY2013FR067691

PATIENT
  Age: 46 Year
  Sex: Female

DRUGS (2)
  1. LEVODOPA+CARBIDOPA [Suspect]
     Indication: PARKINSON^S DISEASE
  2. ROPINIROLE [Concomitant]
     Indication: PARKINSON^S DISEASE

REACTIONS (9)
  - Stress fracture [Recovered/Resolved]
  - Foot fracture [Recovered/Resolved]
  - Back pain [Recovered/Resolved]
  - Pain in extremity [Not Recovered/Not Resolved]
  - Lumbar vertebral fracture [Recovered/Resolved]
  - Osteopenia [Recovered/Resolved]
  - Pseudarthrosis [Unknown]
  - Dyskinesia [Unknown]
  - Blood homocysteine increased [Unknown]
